FAERS Safety Report 9703705 (Version 3)
Quarter: 2014Q1

REPORT INFORMATION
  Report Type: Spontaneous
  Country: US (occurrence: US)
  Receive Date: 20131122
  Receipt Date: 20140124
  Transmission Date: 20141002
  Serious: No
  Sender: FDA-Public Use
  Company Number: US-009507513-1311USA003733

PATIENT
  Age: 3 Year
  Sex: Male
  Weight: 12.75 kg

DRUGS (2)
  1. PEGINTRON [Suspect]
     Indication: CHRONIC HEPATITIS C
     Dosage: 40 MICROGRAM, QW
     Route: 058
     Dates: start: 20131015
  2. REBETOL [Suspect]
     Indication: HEPATITIS C
     Dosage: TOTAL DAILY DOSE: 200 MG
     Route: 048
     Dates: start: 20131015

REACTIONS (1)
  - Aggression [Recovered/Resolved]
